FAERS Safety Report 9766264 (Version 3)
Quarter: 2014Q1

REPORT INFORMATION
  Report Type: Spontaneous
  Country: US (occurrence: US)
  Receive Date: 20131217
  Receipt Date: 20140205
  Transmission Date: 20141002
  Serious: Yes (Life-Threatening, Hospitalization)
  Sender: FDA-Public Use
  Company Number: US-SA-2013SA126846

PATIENT
  Age: 43 Year
  Sex: Male

DRUGS (7)
  1. FABRAZYME [Suspect]
     Indication: FABRY^S DISEASE
     Route: 042
     Dates: start: 20030722
  2. PROZAC [Concomitant]
  3. DIPHENHYDRAMINE [Concomitant]
     Indication: PREMEDICATION
     Dosage: 30 MINUTES PRIOR TO INFUSION.
  4. ACETAMINOPHEN [Concomitant]
     Indication: PREMEDICATION
     Dosage: 30 MINUTES PRIOR TO INFUSION.
     Route: 048
  5. PREDNISONE [Concomitant]
     Indication: PREMEDICATION
  6. CORTICOSTEROIDS [Concomitant]
     Indication: PREMEDICATION
     Dosage: 30 MINUTES PRIOR TO INFUSION
  7. LASIX [Concomitant]

REACTIONS (3)
  - Cardiac failure [Not Recovered/Not Resolved]
  - Dyspnoea [Unknown]
  - Weight decreased [Not Recovered/Not Resolved]
